FAERS Safety Report 12111403 (Version 1)
Quarter: 2016Q1

REPORT INFORMATION
  Report Type: Spontaneous
  Country: JP (occurrence: JP)
  Receive Date: 20160224
  Receipt Date: 20160224
  Transmission Date: 20160526
  Serious: Yes (Other)
  Sender: FDA-Public Use
  Company Number: JP-ELI_LILLY_AND_COMPANY-JP201602007241

PATIENT
  Age: 71 Year
  Sex: Male

DRUGS (5)
  1. DIFFERIN [Concomitant]
     Active Substance: ADAPALENE
     Indication: PROPHYLAXIS
     Dosage: UNK UNK, UNKNOWN
     Route: 061
  2. ERBITUX [Suspect]
     Active Substance: CETUXIMAB
     Indication: SQUAMOUS CELL CARCINOMA OF HEAD AND NECK
     Dosage: UNK UNK, UNKNOWN
     Route: 065
     Dates: start: 20150522, end: 20150703
  3. RINDERON VG [Concomitant]
     Active Substance: BETAMETHASONE VALERATE\GENTAMICIN SULFATE
     Indication: PROPHYLAXIS
     Dosage: UNK UNK, UNKNOWN
     Route: 061
  4. MINOCYCLINE                        /00232402/ [Concomitant]
     Indication: PROPHYLAXIS
     Dosage: UNK UNK, UNKNOWN
     Route: 048
  5. HIRUDOID                           /00723701/ [Concomitant]
     Active Substance: PENTOSAN POLYSULFATE SODIUM
     Indication: PROPHYLAXIS
     Dosage: UNK UNK, UNKNOWN
     Route: 061

REACTIONS (8)
  - Dry mouth [Recovered/Resolved]
  - Pneumonia aspiration [Recovered/Resolved]
  - Stomatitis [Recovered/Resolved]
  - Dermatitis acneiform [Recovered/Resolved]
  - Dysgeusia [Recovered/Resolved]
  - Dysphagia [Recovered/Resolved]
  - Pharyngeal inflammation [Recovered/Resolved]
  - Radiation skin injury [Recovered/Resolved]

NARRATIVE: CASE EVENT DATE: 20150602
